FAERS Safety Report 19993794 (Version 1)
Quarter: 2021Q4

REPORT INFORMATION
  Report Type: Spontaneous
  Country: CA (occurrence: CA)
  Receive Date: 20211025
  Receipt Date: 20211025
  Transmission Date: 20220303
  Serious: Yes (Hospitalization)
  Sender: FDA-Public Use
  Company Number: CA-PFIZER INC-202101358643

PATIENT
  Age: 74 Year
  Sex: Female
  Weight: 88 kg

DRUGS (1)
  1. ATORVASTATIN CALCIUM [Suspect]
     Active Substance: ATORVASTATIN CALCIUM
     Indication: Dyslipidaemia
     Dosage: 20 MG, 1X/DAY
     Route: 048

REACTIONS (4)
  - Anxiety [Recovered/Resolved]
  - Hypoaesthesia oral [Recovered/Resolved]
  - Swollen tongue [Recovered/Resolved]
  - Throat tightness [Recovered/Resolved]
